FAERS Safety Report 20191447 (Version 2)
Quarter: 2021Q4

REPORT INFORMATION
  Report Type: Spontaneous
  Country: EE (occurrence: EE)
  Receive Date: 20211216
  Receipt Date: 20211223
  Transmission Date: 20220304
  Serious: Yes (Death, Other)
  Sender: FDA-Public Use
  Company Number: EE-NOVARTISPH-NVSC2021EE284157

PATIENT
  Age: 67 Year
  Sex: Male

DRUGS (3)
  1. RYDAPT [Suspect]
     Active Substance: MIDOSTAURIN
     Indication: Acute myeloid leukaemia
     Dosage: 50 MG X 2
     Route: 065
     Dates: start: 201907
  2. RYDAPT [Suspect]
     Active Substance: MIDOSTAURIN
     Dosage: 50 MG X 2
     Route: 065
     Dates: start: 201908
  3. RYDAPT [Suspect]
     Active Substance: MIDOSTAURIN
     Dosage: 50 MG X 2
     Route: 065
     Dates: start: 201910

REACTIONS (5)
  - Death [Fatal]
  - Pancytopenia [Unknown]
  - Bronchitis [Unknown]
  - Neutropenia [Unknown]
  - Diarrhoea [Unknown]

NARRATIVE: CASE EVENT DATE: 20190701
